FAERS Safety Report 13165619 (Version 1)
Quarter: 2017Q1

REPORT INFORMATION
  Report Type: Spontaneous
  Country: US (occurrence: US)
  Receive Date: 20170131
  Receipt Date: 20170131
  Transmission Date: 20170428
  Serious: No
  Sender: FDA-Public Use
  Company Number: US-ASTRAZENECA-2017SE08180

PATIENT
  Sex: Male

DRUGS (1)
  1. ZURAMPIC [Suspect]
     Active Substance: LESINURAD
     Indication: HYPERURICAEMIA
     Route: 048

REACTIONS (5)
  - Dehydration [Recovered/Resolved]
  - Renal failure [Recovered/Resolved]
  - Vomiting [Recovered/Resolved]
  - Creatinine renal clearance abnormal [Recovered/Resolved]
  - Product use issue [Unknown]
